FAERS Safety Report 13101237 (Version 1)
Quarter: 2017Q1

REPORT INFORMATION
  Report Type: Spontaneous
  Country: US (occurrence: US)
  Receive Date: 20170110
  Receipt Date: 20170110
  Transmission Date: 20170428
  Serious: Yes (Death)
  Sender: FDA-Public Use
  Company Number: US-BAYER-2017-000986

PATIENT
  Age: 47 Year
  Sex: Male

DRUGS (2)
  1. SALICYLAMIDE [Suspect]
     Active Substance: SALICYLAMIDE
  2. ACETYLSALICYLIC ACID + CAFFEINE [Suspect]
     Active Substance: ASPIRIN\CAFFEINE
     Dosage: UNK
     Route: 048

REACTIONS (1)
  - Intentional product misuse [Fatal]
